FAERS Safety Report 9790200 (Version 1)
Quarter: 2013Q4

REPORT INFORMATION
  Report Type: Spontaneous
  Country: US (occurrence: US)
  Receive Date: 20131231
  Receipt Date: 20131231
  Transmission Date: 20140711
  Serious: Yes (Other)
  Sender: FDA-Public Use
  Company Number: US-SA-2013SA135744

PATIENT
  Sex: Male
  Weight: 105 kg

DRUGS (23)
  1. LANTUS [Concomitant]
  2. METFORMIN [Concomitant]
  3. GLIMEPIRIDE [Concomitant]
  4. NIASPAN [Concomitant]
  5. SIMVASTATIN [Concomitant]
  6. POTASSIUM IODIDE [Concomitant]
     Dosage: 1-4 DROPS WITH WATER,
  7. LISINOPRIL [Concomitant]
  8. COENZA Q [Concomitant]
  9. FISH OIL [Concomitant]
  10. ISOSORBIDE [Concomitant]
  11. VITAMIN D [Concomitant]
  12. MULTIVITAMINS [Concomitant]
  13. VITAMIN B COMPLEX [Concomitant]
  14. BYETTA [Concomitant]
  15. ISOSORBIDE MONONITRATE [Concomitant]
  16. ASPIRIN [Concomitant]
  17. METOPROLOL TARTRATE [Concomitant]
  18. PANTOPRAZOLE [Concomitant]
  19. HYDROCHLOROTHIAZIDE [Concomitant]
  20. ARMOUR THYROID [Concomitant]
  21. DHEA [Concomitant]
  22. DIABETA [Suspect]
     Route: 065
  23. EFFIENT [Concomitant]

REACTIONS (1)
  - Myocardial infarction [Not Recovered/Not Resolved]
